FAERS Safety Report 6376197-3 (Version None)
Quarter: 2009Q3

REPORT INFORMATION
  Report Type: 
  Country: None (occurrence: None)
  Receive Date: 20090924
  Receipt Date: 20090911
  Transmission Date: 20100115
  Serious: Yes (Other)
  Sender: FDA-Public Use
  Company Number: US-TYCO HEALTHCARE/MALLINCKRODT-T200901783

PATIENT
  Sex: Female

DRUGS (7)
  1. OPTIMARK [Suspect]
     Indication: NUCLEAR MAGNETIC RESONANCE IMAGING BRAIN
     Dosage: UNK
     Dates: start: 20060203, end: 20060203
  2. OPTIMARK [Suspect]
     Dosage: UNK
     Dates: start: 20060922, end: 20060922
  3. MAGNEVIST [Suspect]
     Indication: ANGIOGRAM
     Dosage: UNK
     Dates: start: 20050707, end: 20050707
  4. GADOLINIUM [Suspect]
     Indication: SCAN BRAIN
     Dosage: UNK
     Dates: start: 20000829, end: 20000829
  5. GADOLINIUM [Suspect]
     Indication: NUCLEAR MAGNETIC RESONANCE IMAGING BRAIN
     Dosage: UNK
     Dates: start: 20001002, end: 20001002
  6. GADOLINIUM [Suspect]
     Dosage: UNK
     Dates: start: 20001104, end: 20001104
  7. GADOLINIUM [Suspect]
     Dosage: UNK
     Dates: start: 20001212, end: 20001212

REACTIONS (1)
  - NEPHROGENIC SYSTEMIC FIBROSIS [None]
